FAERS Safety Report 9594327 (Version 1)
Quarter: 2013Q3

REPORT INFORMATION
  Report Type: Spontaneous
  Country: US (occurrence: None)
  Receive Date: 20130923
  Receipt Date: 20130923
  Transmission Date: 20140515
  Serious: Yes (Death, Hospitalization)
  Sender: FDA-Public Use
  Company Number: 2013STPI000069

PATIENT
  Age: 43 Year
  Sex: Male
  Weight: 198 kg

DRUGS (6)
  1. MATULANE (PROCARBAZINE HYDROCHLORIDE) (CAPSULE, 50MG [Suspect]
     Indication: BRAIN NEOPLASM MALIGNANT
     Route: 048
     Dates: start: 20120418
  2. CEFTIRIZINE HYDROCHLORIDE (CETIRIZINE HYDROCHLORIDE) [Concomitant]
  3. DEXAMETHAZONE (DEXAMETHAZONE) [Concomitant]
  4. CEENU (LOMUSTINE) [Concomitant]
  5. CEENU (LOMUSTINE) [Concomitant]
  6. LEVETIRACETAM (LEVETIRACETAM) [Concomitant]

REACTIONS (4)
  - Hypersensitivity [None]
  - Pyrexia [None]
  - Liver function test abnormal [None]
  - Disease progression [None]
